FAERS Safety Report 7313405-6 (Version None)
Quarter: 2011Q1

REPORT INFORMATION
  Report Type: 
  Country: None (occurrence: None)
  Receive Date: 20110225
  Receipt Date: 20110218
  Transmission Date: 20110831
  Serious: No
  Sender: FDA-Public Use
  Company Number: US-PFIZER INC-2010108513

PATIENT
  Sex: Female

DRUGS (3)
  1. XALATAN [Suspect]
     Indication: MACULAR DEGENERATION
     Dosage: ONE DROP IN EACH EYE ONCE A DAY
     Route: 047
     Dates: start: 20100824
  2. XALATAN [Suspect]
     Indication: GLAUCOMA
  3. NIACIN [Concomitant]
     Dosage: UNK

REACTIONS (2)
  - PHOTOPHOBIA [None]
  - EYE PAIN [None]
